FAERS Safety Report 6738897-2 (Version None)
Quarter: 2010Q2

REPORT INFORMATION
  Report Type: 
  Country: None (occurrence: None)
  Receive Date: 20100521
  Receipt Date: 20100510
  Transmission Date: 20101027
  Serious: Yes (Other)
  Sender: FDA-Public Use
  Company Number: 2010AL002868

PATIENT
  Sex: Female

DRUGS (2)
  1. CITALOPRAM HYDROBROMIDE [Suspect]
     Indication: DRUG USE FOR UNKNOWN INDICATION
     Dosage: 5 MG QD UNK
  2. ALCOHOL [Concomitant]

REACTIONS (11)
  - ALCOHOL USE [None]
  - ANGER [None]
  - ANXIETY [None]
  - ARTHRALGIA [None]
  - BREAST PAIN [None]
  - DRUG DOSE OMISSION [None]
  - DYSGRAPHIA [None]
  - FEELING ABNORMAL [None]
  - INAPPROPRIATE SCHEDULE OF DRUG ADMINISTRATION [None]
  - PAIN IN EXTREMITY [None]
  - SUICIDAL IDEATION [None]
